FAERS Safety Report 8184196-4 (Version None)
Quarter: 2012Q1

REPORT INFORMATION
  Report Type: 
  Country: None (occurrence: None)
  Receive Date: 20120207
  Receipt Date: 20110112
  Transmission Date: 20120608
  Serious: Yes (Other)
  Sender: FDA-Public Use
  Company Number: 2010026453

PATIENT
  Age: 57 Year
  Sex: Female

DRUGS (1)
  1. VIVAGLOBIN [Suspect]
     Indication: SELECTIVE IGG SUBCLASS DEFICIENCY
     Dosage: (SUBCUTANEOUS)
     Route: 058
     Dates: start: 20100813, end: 20101105

REACTIONS (4)
  - URTICARIA [None]
  - MIGRAINE [None]
  - MUSCULOSKELETAL STIFFNESS [None]
  - MENINGITIS ASEPTIC [None]
